FAERS Safety Report 23451301 (Version 1)
Quarter: 2024Q1

REPORT INFORMATION
  Report Type: Spontaneous
  Country: US (occurrence: US)
  Receive Date: 20240129
  Receipt Date: 20240129
  Transmission Date: 20240410
  Serious: Yes (Other)
  Sender: FDA-Public Use
  Company Number: US-ABBVIE-5603515

PATIENT
  Sex: Female

DRUGS (1)
  1. HUMIRA [Suspect]
     Active Substance: ADALIMUMAB
     Indication: Rheumatoid arthritis
     Route: 058
     Dates: end: 20231208

REACTIONS (4)
  - Endometriosis [Unknown]
  - Abdominal pain upper [Unknown]
  - Post procedural infection [Not Recovered/Not Resolved]
  - Post procedural complication [Not Recovered/Not Resolved]
